FAERS Safety Report 12600357 (Version 5)
Quarter: 2016Q3

REPORT INFORMATION
  Report Type: Spontaneous
  Country: US (occurrence: US)
  Receive Date: 20160727
  Receipt Date: 20160824
  Transmission Date: 20161109
  Serious: Yes (Other)
  Sender: FDA-Public Use
  Company Number: US-009507513-1607USA010294

PATIENT
  Age: 39 Year
  Sex: Female
  Weight: 65.31 kg

DRUGS (1)
  1. NEXPLANON [Suspect]
     Active Substance: ETONOGESTREL
     Indication: PRODUCT USED FOR UNKNOWN INDICATION
     Dosage: 68 MG IN PLACE X 3 YEARS
     Route: 059
     Dates: start: 201310

REACTIONS (6)
  - Menorrhagia [Unknown]
  - Device difficult to use [Not Recovered/Not Resolved]
  - Ovarian cyst [Unknown]
  - Migration of implanted drug [Not Recovered/Not Resolved]
  - Complication of device removal [Unknown]
  - Complication associated with device [Recovered/Resolved]

NARRATIVE: CASE EVENT DATE: 201603
